FAERS Safety Report 5639958-1 (Version None)
Quarter: 2008Q1

REPORT INFORMATION
  Report Type: 
  Country: None (occurrence: None)
  Receive Date: 20080226
  Receipt Date: 20080226
  Transmission Date: 20080703
  Serious: Yes (Disabling)
  Sender: FDA-Public Use
  Company Number: None

PATIENT
  Age: 57 Year
  Sex: Female
  Weight: 108.4097 kg

DRUGS (1)
  1. ADVIL LIQUI-GELS [Suspect]
     Indication: MUSCULOSKELETAL PAIN
     Dosage: 2 CAPS 2X A DAY PO
     Route: 048
     Dates: start: 20080111, end: 20080117

REACTIONS (4)
  - GASTROINTESTINAL OBSTRUCTION [None]
  - GASTROINTESTINAL PAIN [None]
  - MEDICATION RESIDUE [None]
  - PHARMACEUTICAL PRODUCT COMPLAINT [None]
